FAERS Safety Report 26058795 (Version 1)
Quarter: 2025Q4

REPORT INFORMATION
  Report Type: Spontaneous
  Country: US (occurrence: None)
  Receive Date: 20251117
  Receipt Date: 20251117
  Transmission Date: 20260118
  Serious: Yes (Hospitalization, Disabling, Other)
  Sender: FDA-CTU
  Company Number: None

PATIENT
  Age: 12 Year
  Sex: Male
  Weight: 40.5 kg

DRUGS (3)
  1. FLORONE [Suspect]
     Active Substance: DIFLORASONE DIACETATE
  2. DUPIXENT [Concomitant]
     Active Substance: DUPILUMAB
  3. OPZELURA [Concomitant]
     Active Substance: RUXOLITINIB PHOSPHATE

REACTIONS (12)
  - Drug ineffective [None]
  - Eczema [None]
  - Rash [None]
  - Rash erythematous [None]
  - Rash macular [None]
  - Blister [None]
  - Burning sensation [None]
  - Insomnia [None]
  - Sensitive skin [None]
  - Skin exfoliation [None]
  - Pain [None]
  - Staphylococcal infection [None]

NARRATIVE: CASE EVENT DATE: 20231031
